FAERS Safety Report 9909013 (Version 1)
Quarter: 2014Q1

REPORT INFORMATION
  Report Type: Spontaneous
  Country: DE (occurrence: DE)
  Receive Date: 20140219
  Receipt Date: 20140219
  Transmission Date: 20141002
  Serious: Yes (Life-Threatening)
  Sender: FDA-Public Use
  Company Number: DE-TEVA-461002GER

PATIENT
  Age: 4 Year
  Sex: Male
  Weight: 20 kg

DRUGS (1)
  1. METHOTREXATE [Suspect]
     Indication: CHEMOTHERAPY
     Route: 048

REACTIONS (7)
  - Conjunctivitis allergic [Unknown]
  - Eyelid oedema [Unknown]
  - Lip oedema [Unknown]
  - Pruritus [Unknown]
  - Rhinitis allergic [Unknown]
  - Type I hypersensitivity [Unknown]
  - Urticaria [Unknown]
